FAERS Safety Report 23747105 (Version 1)
Quarter: 2024Q2

REPORT INFORMATION
  Report Type: Report from Study
  Country: US (occurrence: US)
  Receive Date: 20240416
  Receipt Date: 20240416
  Transmission Date: 20240716
  Serious: Yes (Other)
  Sender: FDA-Public Use
  Company Number: US-JNJFOC-20240376952

PATIENT
  Age: 35 Year
  Sex: Male

DRUGS (2)
  1. SPRAVATO [Suspect]
     Active Substance: ESKETAMINE
     Indication: Depression
     Dosage: ^56 MG, 1 TOTAL DOSE^
     Dates: start: 20231128, end: 20231128
  2. SPRAVATO [Suspect]
     Active Substance: ESKETAMINE
     Dosage: ^84 MG, 18 TOTAL DOSES^
     Dates: start: 20231205, end: 20240402

REACTIONS (11)
  - Hallucination, visual [Unknown]
  - Mental impairment [Unknown]
  - Tinnitus [Unknown]
  - Asthenia [Unknown]
  - Paraesthesia [Unknown]
  - Fatigue [Unknown]
  - Tremor [Recovered/Resolved]
  - Migraine [Unknown]
  - Adverse event [Unknown]
  - Palpitations [Recovered/Resolved]
  - Emotional poverty [Unknown]

NARRATIVE: CASE EVENT DATE: 20240101
